FAERS Safety Report 25059194 (Version 2)
Quarter: 2025Q1

REPORT INFORMATION
  Report Type: Report from Study
  Country: US (occurrence: US)
  Receive Date: 20250310
  Receipt Date: 20250320
  Transmission Date: 20250408
  Serious: Yes (Death)
  Sender: TEVA
  Company Number: US-TEVA-VS-3306576

PATIENT

DRUGS (3)
  1. GEMCITABINE [Suspect]
     Active Substance: GEMCITABINE
     Indication: Transitional cell cancer of the renal pelvis and ureter
     Route: 065
  2. DOCETAXEL [Suspect]
     Active Substance: DOCETAXEL
     Indication: Transitional cell cancer of the renal pelvis and ureter
     Route: 065
  3. SODIUM CHLORIDE [Concomitant]
     Active Substance: SODIUM CHLORIDE
     Indication: Vehicle solution use
     Route: 065

REACTIONS (1)
  - Drug ineffective [Fatal]
